FAERS Safety Report 8613510 (Version 3)
Quarter: 2012Q4

REPORT INFORMATION
  Report Type: Report from Study
  Country: GB (occurrence: GB)
  Receive Date: 20120614
  Receipt Date: 20121203
  Transmission Date: 20130627
  Serious: Yes (Other)
  Sender: FDA-Public Use
  Company Number: GB-BIOGENIDEC-2012BI020393

PATIENT
  Age: 29 Year
  Sex: Female

DRUGS (7)
  1. TYSABRI [Suspect]
     Indication: MULTIPLE SCLEROSIS
     Route: 042
     Dates: start: 20080912
  2. TYSABRI [Suspect]
     Indication: MULTIPLE SCLEROSIS
     Route: 042
     Dates: start: 201003, end: 20120216
  3. TYSABRI [Suspect]
     Indication: MULTIPLE SCLEROSIS
     Route: 042
     Dates: start: 20120503
  4. MODAFINIL [Concomitant]
  5. VENTOLIN [Concomitant]
  6. BISACODYL [Concomitant]
  7. BECOTIDE [Concomitant]

REACTIONS (1)
  - Ectopic pregnancy [Recovered/Resolved]
